FAERS Safety Report 5304471-8 (Version None)
Quarter: 2007Q2

REPORT INFORMATION
  Report Type: 
  Country: None (occurrence: None)
  Receive Date: 20070419
  Receipt Date: 20070419
  Transmission Date: 20071010
  Serious: No
  Sender: FDA-Public Use
  Company Number: None

PATIENT
  Age: 43 Year
  Sex: Female
  Weight: 139.6172 kg

DRUGS (1)
  1. ELMIRON [Suspect]
     Indication: CYSTITIS INTERSTITIAL
     Dosage: 100MG  T.I.D.  PO
     Route: 048
     Dates: start: 20010101

REACTIONS (3)
  - POST PROCEDURAL HAEMORRHAGE [None]
  - THROMBOSIS [None]
  - VAGINAL HAEMORRHAGE [None]
